FAERS Safety Report 6355458-8 (Version None)
Quarter: 2009Q3

REPORT INFORMATION
  Report Type: 
  Country: None (occurrence: None)
  Receive Date: 20090914
  Receipt Date: 20090908
  Transmission Date: 20100115
  Serious: Yes (Death)
  Sender: FDA-Public Use
  Company Number: FR-AMGEN-UK357019

PATIENT
  Sex: Male

DRUGS (15)
  1. VECTIBIX [Suspect]
     Indication: PRE-EXISTING DISEASE
     Route: 042
     Dates: start: 20081013, end: 20081013
  2. KYTRIL [Concomitant]
     Route: 042
     Dates: start: 20081013, end: 20081013
  3. METHYLPREDNISOLONE [Concomitant]
     Route: 042
     Dates: start: 20081013, end: 20081013
  4. METOCLOPRAMIDE [Concomitant]
     Route: 042
     Dates: start: 20081013, end: 20081013
  5. SOLUPRED [Concomitant]
  6. TRACLEER [Concomitant]
  7. LASIX [Concomitant]
  8. DIFFU K [Concomitant]
  9. PREVISCAN [Concomitant]
  10. PLAVIX [Concomitant]
  11. NEBIVOLOL [Concomitant]
  12. TAREG [Concomitant]
  13. SPIRIVA [Concomitant]
  14. FORADIL [Concomitant]
  15. DAFALGAN [Concomitant]

REACTIONS (1)
  - CARDIO-RESPIRATORY ARREST [None]
